FAERS Safety Report 6508090-7 (Version None)
Quarter: 2009Q4

REPORT INFORMATION
  Report Type: 
  Country: None (occurrence: None)
  Receive Date: 20091210
  Receipt Date: 20090527
  Transmission Date: 20100525
  Serious: Yes (Hospitalization)
  Sender: FDA-Public Use
  Company Number: CIP09001390

PATIENT
  Sex: Female

DRUGS (2)
  1. ACTONEL [Suspect]
     Dosage: ORAL
     Route: 048
  2. FOSAMAX [Suspect]
     Dosage: ORAL
     Route: 048

REACTIONS (1)
  - OSTEONECROSIS [None]
